FAERS Safety Report 17629741 (Version 1)
Quarter: 2020Q2

REPORT INFORMATION
  Report Type: Other
  Country: CA (occurrence: CA)
  Receive Date: 20200406
  Receipt Date: 20200406
  Transmission Date: 20200713
  Serious: Yes (Other)
  Sender: FDA-Public Use
  Company Number: CA-PFIZER INC-2020137113

PATIENT
  Sex: Male

DRUGS (7)
  1. IFOSFAMIDE. [Suspect]
     Active Substance: IFOSFAMIDE
     Indication: GERM CELL CANCER METASTATIC
     Dosage: UNK
  2. FILGRASTIM [Concomitant]
     Active Substance: FILGRASTIM
     Dosage: UNK
  3. CISPLATIN. [Suspect]
     Active Substance: CISPLATIN
     Indication: GERM CELL CANCER METASTATIC
     Dosage: UNK
  4. BLEOMYCIN SULFATE [Suspect]
     Active Substance: BLEOMYCIN SULFATE
     Indication: GERM CELL CANCER METASTATIC
     Dosage: UNK
  5. PACLITAXEL. [Suspect]
     Active Substance: PACLITAXEL
     Indication: GERM CELL CANCER METASTATIC
     Dosage: UNK
  6. OXALIPLATIN. [Suspect]
     Active Substance: OXALIPLATIN
     Indication: GERM CELL CANCER METASTATIC
     Dosage: UNK
  7. ETOPOSIDE. [Suspect]
     Active Substance: ETOPOSIDE
     Indication: GERM CELL CANCER METASTATIC
     Dosage: UNK

REACTIONS (3)
  - Clostridium difficile colitis [Unknown]
  - Off label use [Unknown]
  - Product use in unapproved indication [Unknown]
